FAERS Safety Report 7949911-0 (Version None)
Quarter: 2011Q4

REPORT INFORMATION
  Report Type: 
  Country: None (occurrence: None)
  Receive Date: 20111130
  Receipt Date: 20111128
  Transmission Date: 20120403
  Serious: Yes (Death)
  Sender: FDA-Public Use
  Company Number: FR-BAYER-2011-114160

PATIENT
  Age: 34 Year
  Sex: Female

DRUGS (10)
  1. CIPROFLOXACIN [Suspect]
     Dosage: UNK
     Dates: start: 20110927, end: 20111007
  2. VANCOMYCIN [Suspect]
     Dosage: UNK
     Dates: start: 20110930, end: 20111007
  3. ACETAMINOPHEN [Suspect]
     Dosage: UNK
     Dates: start: 20111003, end: 20111007
  4. METHADONE HCL [Concomitant]
     Indication: DRUG DEPENDENCE
  5. CALCIPARINE [Suspect]
     Dosage: 0.2 ML, BID
     Route: 058
     Dates: start: 20110922, end: 20111006
  6. CATAPRES [Suspect]
     Dosage: UNK
     Dates: start: 20110927, end: 20111007
  7. LASIX [Suspect]
     Dosage: UNK
     Dates: start: 20111004, end: 20111007
  8. NOZINAN [Suspect]
     Dosage: UNK
     Dates: start: 20110927, end: 20111007
  9. ULTIVA [Suspect]
     Dosage: UNK
     Dates: start: 20110929, end: 20111008
  10. TIENAM [Suspect]
     Dosage: UNK
     Dates: start: 20110927, end: 20111008

REACTIONS (2)
  - CEREBRAL HAEMATOMA [None]
  - COMA [None]
